FAERS Safety Report 8450501-4 (Version None)
Quarter: 2012Q2

REPORT INFORMATION
  Report Type: 
  Country: None (occurrence: None)
  Receive Date: 20120620
  Receipt Date: 20120608
  Transmission Date: 20120825
  Serious: Yes (Other)
  Sender: FDA-Public Use
  Company Number: US-BRISTOL-MYERS SQUIBB COMPANY-16674509

PATIENT
  Sex: Female

DRUGS (1)
  1. ORENCIA [Suspect]
     Dosage: ORENCIA IV OR ORENCIA SUBCUTANEOUS

REACTIONS (1)
  - LUPUS-LIKE SYNDROME [None]
